FAERS Safety Report 6601205-1 (Version None)
Quarter: 2010Q1

REPORT INFORMATION
  Report Type: 
  Country: None (occurrence: None)
  Receive Date: 20100225
  Receipt Date: 20100217
  Transmission Date: 20100710
  Serious: Yes (Other)
  Sender: FDA-Public Use
  Company Number: DE-BRISTOL-MYERS SQUIBB COMPANY-14980288

PATIENT
  Age: 44 Year
  Sex: Female

DRUGS (5)
  1. TAXOL [Suspect]
     Indication: NON-SMALL CELL LUNG CANCER
     Dosage: DAYS 1,8,15;CYCLE 2 ON 25APR2005
     Dates: start: 20050401, end: 20050513
  2. CARBOPLATIN [Suspect]
     Indication: NON-SMALL CELL LUNG CANCER
     Dosage: 1DF=AUC5;DAY1 1HR INF;CYCLE 2 ON 25APR05
     Dates: start: 20050401, end: 20050425
  3. DEXAMETHASONE [Concomitant]
     Dosage: GIVEN ON 25APR05;AT MORNING
     Route: 048
     Dates: start: 20050401
  4. CLEMASTINE FUMARATE [Concomitant]
     Dosage: GIVEN ON 25APR05
     Route: 042
     Dates: start: 20050401
  5. RANITIDINE [Concomitant]
     Dosage: GIVEN ON 25APR05
     Route: 042
     Dates: start: 20050401

REACTIONS (2)
  - DYSPNOEA [None]
  - PYREXIA [None]
